FAERS Safety Report 8139914-8 (Version None)
Quarter: 2012Q1

REPORT INFORMATION
  Report Type: 
  Country: None (occurrence: None)
  Receive Date: 20120215
  Receipt Date: 20120206
  Transmission Date: 20120608
  Serious: Yes (Other)
  Sender: FDA-Public Use
  Company Number: AT-ASTRAZENECA-2012SE01040

PATIENT
  Age: 1053 Month
  Sex: Female

DRUGS (3)
  1. LOVENOX [Concomitant]
     Indication: THROMBOSIS
     Dates: start: 20090101, end: 20110901
  2. LOVENOX [Concomitant]
     Dates: start: 20111227
  3. FASLODEX [Suspect]
     Indication: BREAST CANCER
     Route: 030
     Dates: start: 20111024

REACTIONS (4)
  - VENOUS THROMBOSIS [None]
  - BACK PAIN [None]
  - MUSCULAR WEAKNESS [None]
  - OEDEMA PERIPHERAL [None]
